FAERS Safety Report 7888304-1 (Version None)
Quarter: 2011Q4

REPORT INFORMATION
  Report Type: 
  Country: None (occurrence: None)
  Receive Date: 20111103
  Receipt Date: 20111021
  Transmission Date: 20120403
  Serious: Yes (Other)
  Sender: FDA-Public Use
  Company Number: US-BAYER-2011-033455

PATIENT
  Age: 23 Year
  Sex: Female
  Weight: 70.748 kg

DRUGS (8)
  1. YAZ [Suspect]
     Indication: PRODUCT USED FOR UNKNOWN INDICATION
     Dosage: UNK
     Dates: start: 20070901, end: 20080301
  2. FLUOXETINE HYDROCHLORIDE [Concomitant]
     Indication: DEPRESSION
     Dosage: UNK
     Dates: start: 20081001
  3. RHINOCORT [Concomitant]
  4. MULTI-VITAMIN [Concomitant]
     Dosage: UNK
     Dates: start: 20080317
  5. PROPROLOL [Concomitant]
     Indication: MIGRAINE
     Dosage: UNK
     Dates: start: 20071101, end: 20080101
  6. ROCEPHLIN [Concomitant]
  7. IMITREX [Concomitant]
     Indication: MIGRAINE
     Dosage: UNK
     Dates: start: 20071101, end: 20080101
  8. BUPROPION HCL [Concomitant]
     Dosage: 300 MG, UNK

REACTIONS (3)
  - POST THROMBOTIC SYNDROME [None]
  - PAIN [None]
  - DEEP VEIN THROMBOSIS [None]
